FAERS Safety Report 8557501-4 (Version None)
Quarter: 2012Q3

REPORT INFORMATION
  Report Type: 
  Country: None (occurrence: None)
  Receive Date: 20120720
  Receipt Date: 20120705
  Transmission Date: 20120928
  Serious: Yes (Other)
  Sender: FDA-Public Use
  Company Number: E2B_00000284

PATIENT
  Age: 21 Year
  Sex: Female
  Weight: 103.4201 kg

DRUGS (2)
  1. SERTRALINE HYDROCHLORIDE [Suspect]
     Indication: DEPRESSION
     Dosage: 150 MG (100 MG, PER ORAL
     Route: 048
  2. NORGESTIMATE + ETHINYL ESTRADIOL (TRISPRINTEC) [Concomitant]

REACTIONS (2)
  - COELIAC DISEASE [None]
  - CONDITION AGGRAVATED [None]
